FAERS Safety Report 10155778 (Version 1)
Quarter: 2014Q2

REPORT INFORMATION
  Report Type: Spontaneous
  Country: US (occurrence: US)
  Receive Date: 20140506
  Receipt Date: 20140506
  Transmission Date: 20141212
  Serious: Yes (Other)
  Sender: FDA-Public Use
  Company Number: US-BAYER-2014-063708

PATIENT
  Age: 63 Year
  Sex: Female

DRUGS (19)
  1. BAYER GENUINE ASPIRIN ORIGINAL STRENGTH [Suspect]
     Dosage: UNK
  2. PRAVASTATIN SODIUM [Concomitant]
  3. TRAMADOL HCL PCH [Concomitant]
  4. FLEXERIL [Concomitant]
  5. LISINOPRIL [Concomitant]
  6. LEVOTHYROXINE SODIUM [Concomitant]
  7. ALBUTEROL SULFATE [Concomitant]
  8. ACYCLOVIR [ACICLOVIR] [Concomitant]
  9. MIRALAX [Concomitant]
  10. FIBRE, DIETARY [Concomitant]
  11. GAS-X [Concomitant]
  12. SUPER B COMPLEX [Concomitant]
  13. VITAMIN C [Concomitant]
  14. VITAMIN E [Concomitant]
  15. VITAMIN D3 [Concomitant]
  16. LYRICA [Concomitant]
  17. OMEPRAZOLE [Concomitant]
  18. ATENOLOL [Concomitant]
  19. NITROGLYCERIN [Concomitant]

REACTIONS (2)
  - Haemorrhage [None]
  - Drug hypersensitivity [None]
